FAERS Safety Report 8540175-6 (Version None)
Quarter: 2012Q3

REPORT INFORMATION
  Report Type: 
  Country: None (occurrence: None)
  Receive Date: 20120726
  Receipt Date: 20120720
  Transmission Date: 20120928
  Serious: Yes (Hospitalization, Other)
  Sender: FDA-Public Use
  Company Number: DE-ROCHE-1082962

PATIENT
  Age: 64 Year
  Sex: Female
  Weight: 69.4 kg

DRUGS (12)
  1. COTRIM DS [Concomitant]
     Dates: start: 20120203, end: 20120209
  2. AVASTIN [Suspect]
     Indication: BRAIN NEOPLASM MALIGNANT
     Dosage: LAST DOSE PRIOR TO SAE: 19/JUL/2012
     Route: 042
     Dates: start: 20111208
  3. LEVOTHYROXINE SODIUM [Concomitant]
     Dates: start: 20111117
  4. FRAXIPARIN [Concomitant]
     Dates: start: 20111117, end: 20111216
  5. COTRIM DS [Concomitant]
     Dates: start: 20120527, end: 20120531
  6. IRINOTECAN HYDROCHLORIDE [Suspect]
     Indication: BRAIN NEOPLASM MALIGNANT
     Route: 042
     Dates: start: 20120203
  7. DEXAMETHASONE [Concomitant]
     Dates: start: 20111118
  8. HYLO-COMOD [Concomitant]
     Dosage: DROPS/ML
     Dates: start: 20090101
  9. TRIAMCINOLONE [Concomitant]
     Dates: start: 20120216, end: 20120217
  10. PANTOPRAZOLE [Concomitant]
     Dates: start: 20111117, end: 20111216
  11. LEVOTHYROXINE SODIUM [Concomitant]
     Dates: start: 20111117
  12. KEPPRA [Concomitant]
     Dates: start: 20120426

REACTIONS (2)
  - STATUS EPILEPTICUS [None]
  - PARTIAL SEIZURES [None]
